FAERS Safety Report 9741515 (Version 2)
Quarter: 2013Q4

REPORT INFORMATION
  Report Type: Report from Study
  Country: AR (occurrence: AR)
  Receive Date: 20131209
  Receipt Date: 20131216
  Transmission Date: 20140711
  Serious: Yes (Other)
  Sender: FDA-Public Use
  Company Number: AR-ROCHE-1316507

PATIENT
  Sex: Female

DRUGS (2)
  1. RANIBIZUMAB [Suspect]
     Indication: LACRIMATION INCREASED
     Route: 050
     Dates: start: 20131102
  2. RANIBIZUMAB [Suspect]
     Indication: MACULOPATHY

REACTIONS (1)
  - Haemorrhoidal haemorrhage [Unknown]
